FAERS Safety Report 4436138-2 (Version None)
Quarter: 2004Q3

REPORT INFORMATION
  Report Type: 
  Country: None (occurrence: None)
  Receive Date: 20040830
  Receipt Date: 20040819
  Transmission Date: 20050211
  Serious: Yes (Hospitalization)
  Sender: FDA-Public Use
  Company Number: JP-JNJFOC-20040606152

PATIENT
  Sex: Female
  Weight: 57 kg

DRUGS (7)
  1. REMICADE [Suspect]
     Route: 042
  2. REMICADE [Suspect]
     Route: 042
  3. REMICADE [Suspect]
     Route: 042
  4. REMICADE [Suspect]
     Indication: RHEUMATOID ARTHRITIS
     Route: 042
  5. METHOTREXATE [Suspect]
  6. METHOTREXATE [Suspect]
     Indication: RHEUMATOID ARTHRITIS
  7. PREDNISONE [Suspect]
     Indication: RHEUMATOID ARTHRITIS

REACTIONS (3)
  - ASCITES [None]
  - PLEURAL EFFUSION [None]
  - PULMONARY TUBERCULOSIS [None]
